FAERS Safety Report 9785382 (Version 1)
Quarter: 2013Q4

REPORT INFORMATION
  Report Type: Spontaneous
  Country: US (occurrence: None)
  Receive Date: 20131224
  Receipt Date: 20131224
  Transmission Date: 20140711
  Serious: Yes (Hospitalization)
  Sender: FDA-Public Use
  Company Number: 2079174

PATIENT
  Sex: Female

DRUGS (2)
  1. MILRINONE LACTATE [Suspect]
     Route: 042
  2. METRONIDAZOLE [Suspect]
     Dosage: 0

REACTIONS (6)
  - Hypertension [None]
  - Medication error [None]
  - Drug dispensing error [None]
  - Wrong drug administered [None]
  - Bradycardia [None]
  - Product label on wrong product [None]
